FAERS Safety Report 20135882 (Version 1)
Quarter: 2021Q4

REPORT INFORMATION
  Report Type: Spontaneous
  Country: FR (occurrence: FR)
  Receive Date: 20211201
  Receipt Date: 20211201
  Transmission Date: 20220303
  Serious: Yes (Death)
  Sender: FDA-Public Use
  Company Number: FR-PFIZER INC-202101618140

PATIENT
  Age: 93 Year
  Sex: Male

DRUGS (8)
  1. VYNDAQEL [Suspect]
     Active Substance: TAFAMIDIS MEGLUMINE
     Indication: Cardiac amyloidosis
     Dosage: 80 MG, DAILY
  2. FUROSEMIDE [Concomitant]
     Active Substance: FUROSEMIDE
     Dosage: 1/5 1/4
  3. APIXABAN [Concomitant]
     Active Substance: APIXABAN
     Dosage: 2.5 2
  4. SPAGULAX [Concomitant]
     Active Substance: HERBALS\PLANTAGO OVATA SEED
     Dosage: UNK
  5. ALGELDRATE\SODIUM ALGINATE [Concomitant]
     Active Substance: ALGELDRATE\SODIUM ALGINATE
     Dosage: UNK
  6. POTASSIUM CHLORIDE [Concomitant]
     Active Substance: POTASSIUM CHLORIDE
     Dosage: UNK
  7. NITROGLYCERIN [Concomitant]
     Active Substance: NITROGLYCERIN
     Dosage: UNK
  8. AVODART [Concomitant]
     Active Substance: DUTASTERIDE
     Dosage: UNK

REACTIONS (3)
  - Ascites [Fatal]
  - Oedema [Fatal]
  - Cardiac failure [Fatal]
